FAERS Safety Report 25537039 (Version 1)
Quarter: 2025Q3

REPORT INFORMATION
  Report Type: Spontaneous
  Country: US (occurrence: US)
  Receive Date: 20250710
  Receipt Date: 20250710
  Transmission Date: 20251021
  Serious: No
  Sender: Hibrow Healthcare
  Company Number: US-Hibrow Healthcare Private Ltd-2180237

PATIENT

DRUGS (3)
  1. BACLOFEN [Suspect]
     Active Substance: BACLOFEN
     Indication: Back pain
  2. BACLOFEN [Suspect]
     Active Substance: BACLOFEN
     Indication: Muscle spasms
  3. PREGABALIN [Suspect]
     Active Substance: PREGABALIN

REACTIONS (1)
  - Drug ineffective [Unknown]
